FAERS Safety Report 18255111 (Version 1)
Quarter: 2020Q3

REPORT INFORMATION
  Report Type: Report from Study
  Country: US (occurrence: US)
  Receive Date: 20200910
  Receipt Date: 20200910
  Transmission Date: 20201103
  Serious: Yes (Hospitalization)
  Sender: FDA-Public Use
  Company Number: US-JNJFOC-A-US2019-195232

PATIENT
  Age: 38 Year
  Sex: Female
  Weight: 88.44 kg

DRUGS (11)
  1. DILTIAZEM. [Concomitant]
     Active Substance: DILTIAZEM
  2. VELETRI [Suspect]
     Active Substance: EPOPROSTENOL
     Dosage: 15 NG/KG, PER MIN
     Route: 042
  3. OPSUMIT [Suspect]
     Active Substance: MACITENTAN
     Indication: PULMONARY HYPERTENSION
     Dosage: 10 MG, QD
     Route: 048
     Dates: start: 201906, end: 20191129
  4. UPTRAVI [Suspect]
     Active Substance: SELEXIPAG
     Indication: PULMONARY HYPERTENSION
     Route: 048
  5. REMODULIN [Concomitant]
     Active Substance: TREPROSTINIL
  6. ASPIRIN. [Concomitant]
     Active Substance: ASPIRIN
     Dosage: UNK
  7. VELETRI [Suspect]
     Active Substance: EPOPROSTENOL
     Route: 042
  8. VELETRI [Suspect]
     Active Substance: EPOPROSTENOL
     Indication: PULMONARY HYPERTENSION
     Dosage: 30 NG/KG, PER MIN
     Route: 042
     Dates: start: 201908
  9. VELETRI [Suspect]
     Active Substance: EPOPROSTENOL
     Dosage: 10 NG/KG, PER MIN
     Route: 042
     Dates: start: 201908
  10. VELETRI [Suspect]
     Active Substance: EPOPROSTENOL
     Dosage: 12 NG/KG, PER MIN
     Route: 042
  11. TADALAFIL. [Concomitant]
     Active Substance: TADALAFIL

REACTIONS (30)
  - Flatulence [Unknown]
  - Off label use [Unknown]
  - Respiratory failure [Unknown]
  - Complication associated with device [Not Recovered/Not Resolved]
  - Catheter site pain [Not Recovered/Not Resolved]
  - Headache [Unknown]
  - Abdominal pain upper [Unknown]
  - Erythema [Unknown]
  - Pneumonia [Unknown]
  - Pneumonitis [Unknown]
  - Pain in jaw [Unknown]
  - Flushing [Unknown]
  - Abdominal distension [Unknown]
  - Viral infection [Unknown]
  - Catheter management [Recovered/Resolved]
  - Constipation [Unknown]
  - Infection [Unknown]
  - Device dislocation [Recovered/Resolved]
  - Nausea [Unknown]
  - Sinusitis [Unknown]
  - Catheter site erythema [Unknown]
  - Metapneumovirus infection [Unknown]
  - Platelet count abnormal [Unknown]
  - Lung opacity [Unknown]
  - Diarrhoea [Unknown]
  - Atrial flutter [Unknown]
  - Oropharyngeal pain [Unknown]
  - Arthralgia [Unknown]
  - Dyspepsia [Unknown]
  - Rash [Unknown]

NARRATIVE: CASE EVENT DATE: 201908
